FAERS Safety Report 22238850 (Version 1)
Quarter: 2023Q2

REPORT INFORMATION
  Report Type: Spontaneous
  Country: US (occurrence: US)
  Receive Date: 20230421
  Receipt Date: 20230421
  Transmission Date: 20230721
  Serious: Yes (Other)
  Sender: FDA-Public Use
  Company Number: US-ROCHE-3330983

PATIENT
  Age: 69 Year
  Sex: Female

DRUGS (2)
  1. CAPECITABINE [Suspect]
     Active Substance: CAPECITABINE
     Indication: Breast cancer metastatic
     Dosage: TAKE 1 TABLET BY MOUTH (150MG) TWICE A DAY ALONG WITH 500MG TABLET FOR TOTAL DOSE OF 1650MG TWICE DA
     Route: 048
  2. CAPECITABINE [Suspect]
     Active Substance: CAPECITABINE
     Indication: Breast cancer metastatic
     Dosage: TAKE 3 TABLET(S) BY MOUTH (1500MG) TWICE A DAY ALONG WITH 150MG TABLET FOR TOTAL DOSE OF 1650MG TWIC
     Route: 048

REACTIONS (1)
  - Cataract [Unknown]
